FAERS Safety Report 9302461 (Version 2)
Quarter: 2013Q2

REPORT INFORMATION
  Report Type: Report from Study
  Country: CA (occurrence: CA)
  Receive Date: 20130522
  Receipt Date: 20130527
  Transmission Date: 20140414
  Serious: Yes (Hospitalization)
  Sender: FDA-Public Use
  Company Number: CA-ROCHE-1211255

PATIENT
  Sex: Male
  Weight: 92.5 kg

DRUGS (11)
  1. RITUXAN [Suspect]
     Indication: CHRONIC LYMPHOCYTIC LEUKAEMIA
     Route: 042
     Dates: start: 20120921
  2. MORPHINE [Suspect]
     Indication: ANALGESIC THERAPY
     Route: 065
     Dates: start: 2013, end: 2013
  3. CELEBREX [Concomitant]
  4. VITAMIN B12 [Concomitant]
  5. OMEPRAZOLE [Concomitant]
  6. CARBAMACEPINA [Concomitant]
  7. DOCUSATE SODIUM [Concomitant]
  8. ASA [Concomitant]
  9. TYLENOL #1 (CANADA) [Concomitant]
  10. TERAZOSIN [Concomitant]
  11. ELTROXIN [Concomitant]

REACTIONS (5)
  - Pyrexia [Recovered/Resolved]
  - Campylobacter infection [Recovering/Resolving]
  - Gastrointestinal infection [Recovered/Resolved]
  - Nasopharyngitis [Recovered/Resolved]
  - Abnormal dreams [Unknown]
